FAERS Safety Report 4665771-8 (Version None)
Quarter: 2005Q2

REPORT INFORMATION
  Report Type: 
  Country: None (occurrence: None)
  Receive Date: 20050519
  Receipt Date: 20050509
  Transmission Date: 20051028
  Serious: Yes (Life-Threatening, Hospitalization)
  Sender: FDA-Public Use
  Company Number: PT-BRISTOL-MYERS SQUIBB COMPANY-12961637

PATIENT
  Age: 41 Year
  Sex: Female
  Weight: 50 kg

DRUGS (2)
  1. REYATAZ [Suspect]
     Route: 048
     Dates: start: 20050413, end: 20050101
  2. TENOFOVIR DISOPROXIL FUMARATE [Concomitant]
     Route: 048

REACTIONS (2)
  - SKIN EXFOLIATION [None]
  - SKIN LESION [None]
